FAERS Safety Report 10274983 (Version 1)
Quarter: 2014Q3

REPORT INFORMATION
  Report Type: Spontaneous
  Country: CN (occurrence: CN)
  Receive Date: 20140703
  Receipt Date: 20140703
  Transmission Date: 20150326
  Serious: Yes (Other)
  Sender: FDA-Public Use
  Company Number: CN-ABBVIE-14K-035-1254770-00

PATIENT
  Age: 38 Year
  Sex: Female

DRUGS (3)
  1. DEPAKINE CHRONO [Suspect]
     Active Substance: VALPROATE SODIUM
     Indication: EPILEPSY
     Dosage: 1 DOSAGE FORM
     Route: 048
     Dates: start: 20140621
  2. PHENYTOIN SODIUM. [Concomitant]
     Active Substance: PHENYTOIN SODIUM
     Indication: PRODUCT USED FOR UNKNOWN INDICATION
     Dates: start: 20140625
  3. CARBAMAZEPINE. [Concomitant]
     Active Substance: CARBAMAZEPINE
     Indication: PRODUCT USED FOR UNKNOWN INDICATION
     Dates: start: 20140625

REACTIONS (6)
  - Fall [Unknown]
  - Epilepsy [Unknown]
  - Loss of consciousness [Unknown]
  - Bite [Unknown]
  - Foaming at mouth [Unknown]
  - Bruxism [Unknown]

NARRATIVE: CASE EVENT DATE: 20140623
